FAERS Safety Report 9093998 (Version 1)
Quarter: 2013Q1

REPORT INFORMATION
  Report Type: Report from Study
  Country: US (occurrence: US)
  Receive Date: 20130201
  Receipt Date: 20130201
  Transmission Date: 20140127
  Serious: Yes (Hospitalization)
  Sender: FDA-Public Use
  Company Number: US-ROCHE-776286

PATIENT
  Sex: 0

DRUGS (2)
  1. RITUXIMAB [Suspect]
     Indication: AUTOIMMUNE THROMBOCYTOPENIA
     Dosage: DOSE FORM: INFUSION,ON DAYS 1, 8, 15 AND 22, 4 INFUSION
     Route: 065
  2. DEXAMETHASONE [Suspect]
     Indication: AUTOIMMUNE THROMBOCYTOPENIA
     Dosage: (40 MG, ADJUSTED FOR SIZE) ON DAYS 1-4, 15-18 AND 29-32
     Route: 065

REACTIONS (1)
  - Colitis [Unknown]
